FAERS Safety Report 4781054-X (Version None)
Quarter: 2005Q3

REPORT INFORMATION
  Report Type: 
  Country: None (occurrence: None)
  Receive Date: 20050926
  Receipt Date: 20050920
  Transmission Date: 20060218
  Serious: Yes (Hospitalization, Other)
  Sender: FDA-Public Use
  Company Number: 2005-08-1566

PATIENT
  Sex: Male
  Weight: 77 kg

DRUGS (15)
  1. TEMODAL [Suspect]
     Indication: OLIGODENDROGLIOMA
     Dosage: ORAL
     Route: 048
     Dates: start: 20050517, end: 20050520
  2. TEMODAL [Suspect]
     Indication: OLIGODENDROGLIOMA
     Dosage: ORAL
     Route: 048
     Dates: start: 20050523, end: 20050529
  3. TEMODAL [Suspect]
     Indication: OLIGODENDROGLIOMA
     Dosage: ORAL
     Route: 048
     Dates: start: 20050517, end: 20050809
  4. TEMODAL [Suspect]
     Indication: OLIGODENDROGLIOMA
     Dosage: ORAL
     Route: 048
     Dates: start: 20050630, end: 20050809
  5. ZOPHREN (ONDANSETRON) [Suspect]
     Indication: OLIGODENDROGLIOMA
     Dosage: ORAL
     Route: 048
     Dates: start: 20050517, end: 20050520
  6. ZOPHREN (ONDANSETRON) [Suspect]
     Indication: OLIGODENDROGLIOMA
     Dosage: ORAL
     Route: 048
     Dates: start: 20050523, end: 20050529
  7. ZOPHREN (ONDANSETRON) [Suspect]
     Indication: OLIGODENDROGLIOMA
     Dosage: ORAL
     Route: 048
     Dates: start: 20050517, end: 20050809
  8. ZOPHREN (ONDANSETRON) [Suspect]
     Indication: OLIGODENDROGLIOMA
     Dosage: ORAL
     Route: 048
     Dates: start: 20050630, end: 20050809
  9. NEURONTIN [Concomitant]
  10. DIHYDAN [Concomitant]
  11. URBANYL [Concomitant]
  12. DEPAKENE [Concomitant]
  13. SOLU-MEDROL [Concomitant]
  14. ESOMEPRAZOLE [Concomitant]
  15. RADIATION THERAPY [Concomitant]

REACTIONS (3)
  - CYTOLYTIC HEPATITIS [None]
  - PRURITUS [None]
  - TOXIC EPIDERMAL NECROLYSIS [None]
